FAERS Safety Report 11841976 (Version 1)
Quarter: 2015Q4

REPORT INFORMATION
  Report Type: Spontaneous
  Country: US (occurrence: US)
  Receive Date: 20151216
  Receipt Date: 20151216
  Transmission Date: 20160305
  Serious: No
  Sender: FDA-Public Use
  Company Number: US-RB-072719-15

PATIENT
  Age: 3 Year
  Sex: Male

DRUGS (1)
  1. DELSYM [Suspect]
     Active Substance: DEXTROMETHORPHAN
     Indication: PRODUCT USED FOR UNKNOWN INDICATION
     Dosage: . PATIENT WAS GIVEN 1.25 ML AT 8:30 A.M AND 5 ML DOSE AT ABOUT 1:35 P.M; TOOK LAST ON 09-JAN-2015.,F
     Route: 065

REACTIONS (3)
  - Accidental exposure to product by child [Unknown]
  - Drug administered to patient of inappropriate age [None]
  - No adverse event [Unknown]

NARRATIVE: CASE EVENT DATE: 20150109
